FAERS Safety Report 7385371-9 (Version None)
Quarter: 2011Q1

REPORT INFORMATION
  Report Type: 
  Country: None (occurrence: None)
  Receive Date: 20110330
  Receipt Date: 20101118
  Transmission Date: 20110831
  Serious: No
  Sender: FDA-Public Use
  Company Number: US-MYLANLABS-2010S1021417

PATIENT
  Age: 67 Year
  Sex: Female

DRUGS (2)
  1. LUVOX [Concomitant]
     Route: 048
  2. EMSAM [Suspect]
     Indication: DEPRESSION
     Dosage: QD
     Route: 062
     Dates: start: 20101108, end: 20101117

REACTIONS (4)
  - DRUG INEFFECTIVE [None]
  - DEPRESSION [None]
  - DIZZINESS [None]
  - BALANCE DISORDER [None]
